FAERS Safety Report 6366163-6 (Version None)
Quarter: 2009Q3

REPORT INFORMATION
  Report Type: 
  Country: None (occurrence: None)
  Receive Date: 20090921
  Receipt Date: 20090911
  Transmission Date: 20100115
  Serious: Yes (Other)
  Sender: FDA-Public Use
  Company Number: NZ-BIOGENIDEC-2009BI029073

PATIENT
  Age: 31 Year
  Sex: Female
  Weight: 52 kg

DRUGS (2)
  1. AVONEX [Suspect]
     Indication: MULTIPLE SCLEROSIS
     Route: 030
     Dates: start: 20090601
  2. CONTRACEPTIVE [Concomitant]
     Route: 048

REACTIONS (2)
  - SENSATION OF FOREIGN BODY [None]
  - URTICARIA [None]
